FAERS Safety Report 12761838 (Version 1)
Quarter: 2016Q3

REPORT INFORMATION
  Report Type: Spontaneous
  Country: TR (occurrence: TR)
  Receive Date: 20160920
  Receipt Date: 20160920
  Transmission Date: 20161109
  Serious: Yes (Hospitalization, Other)
  Sender: FDA-Public Use
  Company Number: TR-ALKEM LABORATORIES LIMITED-TR-ALKEM-2016-00186

PATIENT
  Age: 30 Year
  Sex: Female

DRUGS (1)
  1. CEFUROXIME AXETIL. [Suspect]
     Active Substance: CEFUROXIME AXETIL
     Indication: TONSILLITIS
     Dosage: 500 MG, BID

REACTIONS (2)
  - Uveitis [Recovered/Resolved]
  - Hypersensitivity [Recovered/Resolved]
